FAERS Safety Report 7232069-3 (Version None)
Quarter: 2011Q1

REPORT INFORMATION
  Report Type: 
  Country: None (occurrence: None)
  Receive Date: 20110118
  Receipt Date: 20110105
  Transmission Date: 20110831
  Serious: Yes (Death)
  Sender: FDA-Public Use
  Company Number: GB-MYLANLABS-2011S1000458

PATIENT
  Age: 25 Year
  Sex: Male

DRUGS (16)
  1. AMIKACIN [Concomitant]
     Indication: TUBERCULOSIS
     Route: 042
  2. CLOFAZIMINE [Concomitant]
     Indication: PRODUCT USED FOR UNKNOWN INDICATION
  3. ETHAMBUTOL HYDROCHLORIDE [Concomitant]
     Indication: TUBERCULOSIS
  4. PROTHIONAMIDE [Concomitant]
     Indication: TUBERCULOSIS
  5. CYCLOSERINE [Concomitant]
     Indication: TUBERCULOSIS
  6. FLUCONAZOLE [Suspect]
     Indication: ORAL CANDIDIASIS
  7. ONDANSETRON [Suspect]
     Indication: PRODUCT USED FOR UNKNOWN INDICATION
  8. MOXIFLOXACIN [Suspect]
     Indication: TUBERCULOSIS
  9. RITONAVIR [Suspect]
     Indication: PRODUCT USED FOR UNKNOWN INDICATION
  10. HEPARIN [Concomitant]
     Indication: PRODUCT USED FOR UNKNOWN INDICATION
     Dosage: LOW MOLECULAR WEIGHT
  11. DARUNAVIR [Concomitant]
     Indication: PRODUCT USED FOR UNKNOWN INDICATION
  12. EFAVIRENZ [Concomitant]
     Indication: HIV INFECTION
  13. PYRAZINAMIDE [Concomitant]
     Indication: TUBERCULOSIS
  14. VALGANCICLOVIR HCL [Concomitant]
     Indication: PRODUCT USED FOR UNKNOWN INDICATION
  15. LINEZOLID [Concomitant]
     Indication: TUBERCULOSIS
  16. TRUVADA [Concomitant]
     Indication: HIV INFECTION

REACTIONS (1)
  - ARRHYTHMIA [None]
